FAERS Safety Report 10739933 (Version 1)
Quarter: 2015Q1

REPORT INFORMATION
  Report Type: Spontaneous
  Country: CA (occurrence: CA)
  Receive Date: 20150127
  Receipt Date: 20150127
  Transmission Date: 20150721
  Serious: Yes (Hospitalization)
  Sender: FDA-Public Use
  Company Number: CA-JNJFOC-20150111515

PATIENT
  Age: 15 Year
  Sex: Male

DRUGS (2)
  1. PARACETAMOL [Suspect]
     Active Substance: ACETAMINOPHEN
     Indication: SUICIDE ATTEMPT
     Route: 048
     Dates: start: 20131118
  2. PARACETAMOL [Suspect]
     Active Substance: ACETAMINOPHEN
     Route: 048

REACTIONS (5)
  - Intentional overdose [Unknown]
  - Abdominal pain upper [Unknown]
  - Vomiting [Unknown]
  - Hepatic enzyme increased [Unknown]
  - Dysuria [Unknown]

NARRATIVE: CASE EVENT DATE: 20131118
